FAERS Safety Report 6873427-6 (Version None)
Quarter: 2010Q3

REPORT INFORMATION
  Report Type: 
  Country: None (occurrence: None)
  Receive Date: 20100723
  Receipt Date: 20090115
  Transmission Date: 20110219
  Serious: No
  Sender: FDA-Public Use
  Company Number: US-PFIZER INC-2009158116

PATIENT
  Sex: Female
  Weight: 74.83 kg

DRUGS (5)
  1. CHANTIX [Suspect]
     Indication: SMOKING CESSATION THERAPY
     Dosage: FREQUENCY: EVERYDAY;
  2. CYMBALTA [Concomitant]
     Dosage: 30 MG, UNK
  3. SIMVASTATIN [Concomitant]
     Dosage: UNK
  4. VALTREX [Concomitant]
     Dosage: UNK
  5. NAPROXEN [Concomitant]
     Dosage: UNK

REACTIONS (4)
  - HYPERSOMNIA [None]
  - MYALGIA [None]
  - RADICULAR PAIN [None]
  - WEIGHT INCREASED [None]
